FAERS Safety Report 8617628-5 (Version None)
Quarter: 2012Q3

REPORT INFORMATION
  Report Type: 
  Country: None (occurrence: None)
  Receive Date: 20120824
  Receipt Date: 20111207
  Transmission Date: 20120928
  Serious: No
  Sender: FDA-Public Use
  Company Number: US-ASTRAZENECA-2011SE74448

PATIENT
  Sex: Female

DRUGS (1)
  1. SYMBICORT [Suspect]
     Indication: EMPHYSEMA
     Route: 055

REACTIONS (2)
  - CHEMICAL INJURY [None]
  - STOMATITIS [None]
